FAERS Safety Report 5206784-7 (Version None)
Quarter: 2006Q4

REPORT INFORMATION
  Report Type: 
  Country: None (occurrence: None)
  Receive Date: 20061027
  Receipt Date: 20060717
  Transmission Date: 20070319
  Serious: No
  Sender: FDA-Public Use
  Company Number: 012241

PATIENT
  Age: 80 Year
  Sex: Male
  Weight: 63.5 kg

DRUGS (5)
  1. PRIALT [Suspect]
     Indication: BACK PAIN
     Dosage: ONCE/HOUR, INTRATHECAL
     Route: 037
     Dates: start: 20060127, end: 20060401
  2. OMEPRAZOLE [Suspect]
     Indication: GASTROOESOPHAGEAL REFLUX DISEASE
     Dosage: 20 MG, ONCE/DAY
     Dates: start: 20060210
  3. KADIAN [Concomitant]
  4. LANOXIN [Concomitant]
  5. DILAUDID [Concomitant]

REACTIONS (7)
  - BACK PAIN [None]
  - CONFUSIONAL STATE [None]
  - DISORIENTATION [None]
  - DIZZINESS [None]
  - GAIT DISTURBANCE [None]
  - MEMORY IMPAIRMENT [None]
  - NAUSEA [None]
